FAERS Safety Report 11720719 (Version 5)
Quarter: 2016Q2

REPORT INFORMATION
  Report Type: Spontaneous
  Country: US (occurrence: US)
  Receive Date: 20151110
  Receipt Date: 20160518
  Transmission Date: 20160815
  Serious: No
  Sender: FDA-Public Use
  Company Number: US-PFIZER INC-2015346429

PATIENT
  Age: 67 Year
  Sex: Female

DRUGS (5)
  1. PROCARDIA [Suspect]
     Active Substance: NIFEDIPINE
     Indication: ANGINA PECTORIS
     Dosage: 10 MG, UNK
  2. POTASSIUM [Concomitant]
     Active Substance: POTASSIUM
     Dosage: UNK
  3. ZINC [Concomitant]
     Active Substance: ZINC\ZINC CHLORIDE
     Dosage: UNK
  4. CALCIUM [Concomitant]
     Active Substance: CALCIUM
     Dosage: UNK
  5. MAGNESIUM [Concomitant]
     Active Substance: MAGNESIUM
     Dosage: UNK

REACTIONS (3)
  - Therapeutic response unexpected [Unknown]
  - Contusion [Unknown]
  - Pre-existing condition improved [Unknown]
